FAERS Safety Report 6704395-5 (Version None)
Quarter: 2010Q2

REPORT INFORMATION
  Report Type: 
  Country: None (occurrence: None)
  Receive Date: 20100430
  Receipt Date: 20100426
  Transmission Date: 20101027
  Serious: Yes (Hospitalization)
  Sender: FDA-Public Use
  Company Number: US-B.I. PHARMACEUTICALS,INC./RIDGEFIELD-2010-BP-04777BP

PATIENT
  Sex: Female

DRUGS (6)
  1. SPIRIVA [Suspect]
     Indication: CHRONIC OBSTRUCTIVE PULMONARY DISEASE
     Dosage: 18 MCG
     Route: 055
     Dates: start: 20080101
  2. ASPIRIN [Concomitant]
     Indication: PROPHYLAXIS
  3. COUMADIN [Concomitant]
     Indication: CEREBROVASCULAR ACCIDENT
  4. LEVOTHROID [Concomitant]
     Indication: HYPOTHYROIDISM
  5. VITAMINS [Concomitant]
     Indication: PROPHYLAXIS
  6. NATURAL EYE DROPS [Concomitant]
     Indication: DRY EYE

REACTIONS (9)
  - CARDIAC FAILURE [None]
  - DRY EYE [None]
  - DRY MOUTH [None]
  - DYSPHONIA [None]
  - MYALGIA [None]
  - MYOCARDIAL INFARCTION [None]
  - OROPHARYNGEAL PAIN [None]
  - RESPIRATORY TRACT INFECTION [None]
  - VISION BLURRED [None]
